FAERS Safety Report 4497748-X (Version None)
Quarter: 2004Q4

REPORT INFORMATION
  Report Type: 
  Country: None (occurrence: None)
  Receive Date: 20041104
  Receipt Date: 20041027
  Transmission Date: 20050328
  Serious: Yes (Other)
  Sender: FDA-Public Use
  Company Number: 2003-10-0794

PATIENT

DRUGS (2)
  1. REBETOL [Suspect]
     Indication: HEPATITIS C
     Dosage: ORAL
     Route: 048
     Dates: end: 20030301
  2. INTRON A [Suspect]
     Indication: HEPATITIS C
     Dates: end: 20030301

REACTIONS (9)
  - BACTERIAL INFECTION [None]
  - BLOOD CULTURE POSITIVE [None]
  - CAESAREAN SECTION [None]
  - FOETAL GROWTH RETARDATION [None]
  - NEONATAL INFECTION [None]
  - PREGNANCY OF PARTNER [None]
  - PREMATURE BABY [None]
  - TRANSMISSION OF DRUG VIA SEMEN [None]
  - UMBILICAL CORD ABNORMALITY [None]
